FAERS Safety Report 23655900 (Version 1)
Quarter: 2024Q1

REPORT INFORMATION
  Report Type: Spontaneous
  Country: US (occurrence: US)
  Receive Date: 20240321
  Receipt Date: 20240321
  Transmission Date: 20240409
  Serious: No
  Sender: FDA-Public Use
  Company Number: US-TEVA-VS-3139113

PATIENT
  Age: 32 Year
  Sex: Female
  Weight: 93.17 kg

DRUGS (3)
  1. AJOVY [Suspect]
     Active Substance: FREMANEZUMAB-VFRM
     Indication: Migraine
     Dosage: 225/1.5 MG/ML
     Route: 058
  2. AJOVY [Suspect]
     Active Substance: FREMANEZUMAB-VFRM
  3. XANAX [Concomitant]
     Active Substance: ALPRAZOLAM

REACTIONS (11)
  - Feeling abnormal [Recovered/Resolved]
  - Neck pain [Recovering/Resolving]
  - Pain [Recovered/Resolved]
  - Abdominal pain upper [Unknown]
  - Pain in extremity [Recovering/Resolving]
  - Poor quality sleep [Not Recovered/Not Resolved]
  - Dizziness [Recovering/Resolving]
  - Anxiety [Not Recovered/Not Resolved]
  - Chest pain [Not Recovered/Not Resolved]
  - Nausea [Unknown]
  - Feeling hot [Not Recovered/Not Resolved]

NARRATIVE: CASE EVENT DATE: 20231202
